FAERS Safety Report 8235621-1 (Version None)
Quarter: 2012Q1

REPORT INFORMATION
  Report Type: 
  Country: None (occurrence: None)
  Receive Date: 20120323
  Receipt Date: 20120313
  Transmission Date: 20120608
  Serious: Yes (Other)
  Sender: FDA-Public Use
  Company Number: JPI-P-020238

PATIENT
  Age: 63 Year
  Sex: Male
  Weight: 102.0593 kg

DRUGS (2)
  1. XYREM [Suspect]
     Indication: NARCOLEPSY
     Dosage: 4.5 GM (2.25 GM,2 IN 1 D),ORAL
     Route: 048
     Dates: start: 20120110
  2. XYREM [Suspect]
     Indication: SLEEP APNOEA SYNDROME
     Dosage: 4.5 GM (2.25 GM,2 IN 1 D),ORAL
     Route: 048
     Dates: start: 20120110

REACTIONS (11)
  - ARTHRALGIA [None]
  - NARCOLEPSY [None]
  - DIARRHOEA [None]
  - STRESS [None]
  - MEMORY IMPAIRMENT [None]
  - ASTHMA [None]
  - CONCUSSION [None]
  - BRONCHITIS [None]
  - SPINAL FRACTURE [None]
  - CONFUSIONAL STATE [None]
  - ROAD TRAFFIC ACCIDENT [None]
